FAERS Safety Report 26214102 (Version 1)
Quarter: 2025Q4

REPORT INFORMATION
  Report Type: Spontaneous
  Country: GB (occurrence: GB)
  Receive Date: 20251230
  Receipt Date: 20251230
  Transmission Date: 20260118
  Serious: Yes (Other)
  Sender: TEVA
  Company Number: None

PATIENT
  Age: 61 Year
  Sex: Male
  Weight: 86 kg

DRUGS (2)
  1. TAMSULOSIN [Suspect]
     Active Substance: TAMSULOSIN
     Indication: Benign prostatic hyperplasia
     Dosage: 400, DUTASTERIDE AND TAMSULOSIN
     Route: 065
  2. DUTASTERIDE [Suspect]
     Active Substance: DUTASTERIDE
     Indication: Benign prostatic hyperplasia
     Dosage: 400, DUTASTERIDE AND TAMSULOSIN
     Route: 065

REACTIONS (6)
  - Myalgia [Unknown]
  - Anxiety [Unknown]
  - Arthralgia [Unknown]
  - Insomnia [Recovering/Resolving]
  - Influenza like illness [Unknown]
  - Depression [Unknown]

NARRATIVE: CASE EVENT DATE: 20251219
